FAERS Safety Report 10022874 (Version 2)
Quarter: 2014Q1

REPORT INFORMATION
  Report Type: Spontaneous
  Country: BR (occurrence: BR)
  Receive Date: 20140319
  Receipt Date: 20140319
  Transmission Date: 20141002
  Serious: Yes (Other)
  Sender: FDA-Public Use
  Company Number: BR-PFIZER INC-2009269782

PATIENT
  Age: 73 Year
  Sex: Female

DRUGS (9)
  1. XALATAN [Suspect]
     Indication: GLAUCOMA
     Dosage: 1.5 UG (1 DROP IN RIGHT EYE), DAILY
     Route: 047
     Dates: start: 200810
  2. PRED-FORTE [Concomitant]
     Dosage: UNK
  3. LUMIGAN [Concomitant]
     Dosage: UNK
  4. OFLOX [Concomitant]
     Dosage: UNK
  5. OFTAN [Concomitant]
     Dosage: UNK
  6. VERAPAMIL [Concomitant]
     Dosage: UNK
  7. ENALAPRIL [Concomitant]
     Dosage: UNK
  8. ATENOLOL [Concomitant]
     Dosage: UNK
  9. PRED MILD [Concomitant]
     Dosage: UNK

REACTIONS (6)
  - Incorrect dose administered [Unknown]
  - Visual impairment [Unknown]
  - Product dropper issue [Unknown]
  - Irritability [Unknown]
  - Product container issue [Unknown]
  - Product packaging issue [Unknown]
